FAERS Safety Report 17841958 (Version 1)
Quarter: 2020Q2

REPORT INFORMATION
  Report Type: Report from Study
  Country: GB (occurrence: GB)
  Receive Date: 20200529
  Receipt Date: 20200529
  Transmission Date: 20200714
  Serious: Yes (Hospitalization)
  Sender: FDA-Public Use
  Company Number: GB-EISAI MEDICAL RESEARCH-EC-2020-072194

PATIENT
  Sex: Male
  Weight: 77 kg

DRUGS (4)
  1. LENVATINIB [Suspect]
     Active Substance: LENVATINIB
     Indication: THYROID NEOPLASM
     Dosage: OCCASIONALLY HELD FOR A FEW DAYS DUE TO FATIGUE
     Route: 048
     Dates: start: 20170710, end: 2017
  2. LENVATINIB [Suspect]
     Active Substance: LENVATINIB
     Route: 048
     Dates: start: 20170807, end: 2017
  3. LENVATINIB [Suspect]
     Active Substance: LENVATINIB
     Dosage: PAUSED FOR 2-3 DAYS DUE TO POOR APPETITE AND NAUSEA
     Route: 048
     Dates: start: 20180923, end: 20200506
  4. LENVATINIB [Suspect]
     Active Substance: LENVATINIB
     Route: 048
     Dates: start: 20171103, end: 201808

REACTIONS (10)
  - Headache [Unknown]
  - Migraine [Unknown]
  - Nausea [Unknown]
  - Fatigue [Recovered/Resolved]
  - Pneumonia [Unknown]
  - Vomiting [Recovered/Resolved]
  - Dehydration [Unknown]
  - Balance disorder [Unknown]
  - Metastases to bone [Unknown]
  - Decreased appetite [Unknown]

NARRATIVE: CASE EVENT DATE: 2017
